FAERS Safety Report 10233903 (Version 1)
Quarter: 2014Q2

REPORT INFORMATION
  Report Type: Spontaneous
  Country: US (occurrence: US)
  Receive Date: 20140612
  Receipt Date: 20140612
  Transmission Date: 20141212
  Serious: No
  Sender: FDA-Public Use
  Company Number: US-BAYER-2014-086467

PATIENT
  Age: 56 Year
  Sex: Female

DRUGS (1)
  1. ALEVE TABLET [Suspect]
     Indication: BACK PAIN
     Dosage: 2 DF, PRN
     Route: 048
     Dates: start: 201405, end: 20140606

REACTIONS (5)
  - Throat irritation [Recovered/Resolved]
  - Non-cardiac chest pain [Not Recovered/Not Resolved]
  - Dyspepsia [Not Recovered/Not Resolved]
  - Eructation [Not Recovered/Not Resolved]
  - Dyspnoea [Not Recovered/Not Resolved]
